FAERS Safety Report 9475285 (Version 1)
Quarter: 2013Q3

REPORT INFORMATION
  Report Type: Spontaneous
  Country: US (occurrence: US)
  Receive Date: 20130826
  Receipt Date: 20130826
  Transmission Date: 20140515
  Serious: Yes (Other)
  Sender: FDA-Public Use
  Company Number: US-009507513-1308USA007084

PATIENT
  Age: 33 Year
  Sex: Female

DRUGS (1)
  1. AZASITE [Suspect]
     Indication: CONJUNCTIVITIS BACTERIAL
     Dosage: ONE DROP IN LEFT EYE THREE TIMES DAILY
     Route: 047
     Dates: start: 20130720, end: 20130729

REACTIONS (5)
  - Surgery [Not Recovered/Not Resolved]
  - Drug ineffective [Unknown]
  - Eyelid infection [Not Recovered/Not Resolved]
  - Inappropriate schedule of drug administration [Unknown]
  - Drug prescribing error [Unknown]
